FAERS Safety Report 10441639 (Version 1)
Quarter: 2014Q3

REPORT INFORMATION
  Report Type: Spontaneous
  Country: US (occurrence: None)
  Receive Date: 20140905
  Receipt Date: 20140905
  Transmission Date: 20150326
  Serious: Yes (Hospitalization, Other)
  Sender: FDA-Public Use
  Company Number: 1713747-2014-999102

PATIENT
  Age: 84 Year
  Sex: Female

DRUGS (3)
  1. DELFLEX WITH DEXTROSE 1.5% LOW MAGNESIUM LOW CALCIUM [Suspect]
     Active Substance: CALCIUM CHLORIDE\DEXTROSE MONOHYDRATE\MAGNESIUM CHLORIDE\SODIUM CHLORIDE\SODIUM LACTATE
     Indication: RENAL FAILURE CHRONIC
     Dosage: DAILY , IP
     Route: 033
  2. LIBERTY CYCLER CASSETTE [Concomitant]
     Active Substance: DEVICE
  3. LIBERTY CYCLER [Concomitant]
     Active Substance: DEVICE

REACTIONS (1)
  - Peritonitis [None]

NARRATIVE: CASE EVENT DATE: 20140716
